FAERS Safety Report 6432505-6 (Version None)
Quarter: 2009Q4

REPORT INFORMATION
  Report Type: 
  Country: None (occurrence: None)
  Receive Date: 20091105
  Receipt Date: 20091021
  Transmission Date: 20100525
  Serious: Yes (Death, Other)
  Sender: FDA-Public Use
  Company Number: PAR_03244_2009

PATIENT
  Age: 51 Year
  Sex: Male
  Weight: 70 kg

DRUGS (10)
  1. IBUPROFEN [Suspect]
     Indication: DRUG USE FOR UNKNOWN INDICATION
     Dosage: (DF, 1X [NOT THE PRESCRIBED AMOUNT])
  2. ETHANOL (ETHANOL) [Suspect]
     Indication: COMPLETED SUICIDE
     Dosage: (DF, 1X [NOT THE PRESCRIBED AMOUNT])
  3. OXAZEPAM [Suspect]
     Indication: DRUG USE FOR UNKNOWN INDICATION
     Dosage: (DF, 1X [NOT THE PRESCRIBED AMOUNT])
  4. OXCARBAZEPINE [Suspect]
     Indication: DRUG USE FOR UNKNOWN INDICATION
     Dosage: (DF, 1X [NOT THE PRESCRIBED AMOUNT])
  5. METAMIZOL /06276702/ (METAMIZOL) (NOT SPECIFIED) [Suspect]
     Indication: DRUG USE FOR UNKNOWN INDICATION
     Dosage: (DF, 1 X [NOT THE PRESCRIBED AMOUNT])
  6. CLORAZEPATE DIPOTASSIUM [Concomitant]
  7. BIPERIDEN HYDROCHLORIDE TAB [Concomitant]
  8. FLUNITRAZEPAM [Concomitant]
  9. AMOXICILLIN [Concomitant]
  10. ACETYLCYSTEINE [Concomitant]

REACTIONS (14)
  - ASPHYXIA [None]
  - BONE FISSURE [None]
  - CAROTID ARTERY DISEASE [None]
  - COMPLETED SUICIDE [None]
  - CONFUSIONAL STATE [None]
  - COORDINATION ABNORMAL [None]
  - EXCORIATION [None]
  - GASTRIC HAEMORRHAGE [None]
  - HAEMORRHAGE [None]
  - INTERVERTEBRAL DISC DISORDER [None]
  - MULTIPLE INJURIES [None]
  - MUSCLE HAEMORRHAGE [None]
  - PULMONARY OEDEMA [None]
  - TONGUE BITING [None]
